FAERS Safety Report 25277204 (Version 1)
Quarter: 2025Q2

REPORT INFORMATION
  Report Type: Spontaneous
  Country: GB (occurrence: GB)
  Receive Date: 20250507
  Receipt Date: 20250507
  Transmission Date: 20250716
  Serious: Yes (Hospitalization)
  Sender: ACCORD
  Company Number: None

PATIENT
  Age: 61 Year

DRUGS (8)
  1. SPIRONOLACTONE [Suspect]
     Active Substance: SPIRONOLACTONE
     Indication: Product used for unknown indication
     Dosage: 100 MG TABLETS TWO TO BE TAKEN EACH MORNING-TITRATE AS NEEDED
  2. RIFAXIMIN [Concomitant]
     Active Substance: RIFAXIMIN
  3. MIRTAZAPINE [Concomitant]
     Active Substance: MIRTAZAPINE
  4. THIAMINE [Concomitant]
     Active Substance: THIAMINE
  5. GABAPENTIN [Concomitant]
     Active Substance: GABAPENTIN
  6. LACTULOSE [Concomitant]
     Active Substance: LACTULOSE
     Dosage: 3.1-3.7 G / 5 ML ORAL SOLUTION 15 ML TO BE TAKEN TWICE A DAY
  7. PHOSPHATES [Concomitant]
     Dosage: PHOSPHATES ENEMA (FORMULA B)
  8. SENNA [Concomitant]
     Active Substance: SENNOSIDES
     Dosage: SENNA 7.5 MG TABLETS?ONE OR TWO TO BE TAKEN AT NIGHT IF REQUIRED FOR CONSTIPATION

REACTIONS (2)
  - Gynaecomastia [Unknown]
  - Breast tenderness [Unknown]
